FAERS Safety Report 14404528 (Version 2)
Quarter: 2018Q3

REPORT INFORMATION
  Report Type: Spontaneous
  Country: US (occurrence: US)
  Receive Date: 20180117
  Receipt Date: 20180710
  Transmission Date: 20181010
  Serious: Yes (Other)
  Sender: FDA-Public Use
  Company Number: US-SA-2016SA233331

PATIENT
  Age: 52 Year
  Sex: Female

DRUGS (15)
  1. IMIPRAMINE [Concomitant]
     Active Substance: IMIPRAMINE
  2. TAXOTERE [Suspect]
     Active Substance: DOCETAXEL
     Indication: BREAST CANCER FEMALE
     Dosage: 150 MG, Q3W
     Route: 042
     Dates: start: 20081024, end: 20081024
  3. TAXOTERE [Suspect]
     Active Substance: DOCETAXEL
     Dosage: 150 MG, Q3W
     Route: 042
     Dates: start: 20090327, end: 20090327
  4. REGLAN [METOCLOPRAMIDE HYDROCHLORIDE] [Concomitant]
  5. ACTOS [Concomitant]
     Active Substance: PIOGLITAZONE HYDROCHLORIDE
  6. DAUNORUBICIN [Concomitant]
     Active Substance: DAUNORUBICIN
  7. HYDROCODONE [Concomitant]
     Active Substance: HYDROCODONE
  8. NEOSAR [Concomitant]
     Active Substance: CYCLOPHOSPHAMIDE
  9. LEVOSTIN [Concomitant]
  10. VITAMIN D [Concomitant]
     Active Substance: CHOLECALCIFEROL
  11. ZYRTEC [Concomitant]
     Active Substance: CETIRIZINE HYDROCHLORIDE
  12. PRILOSEC [OMEPRAZOLE MAGNESIUM] [Concomitant]
  13. CALCIUM [Concomitant]
     Active Substance: CALCIUM
  14. GABAPENTIN. [Concomitant]
     Active Substance: GABAPENTIN
  15. METFORMIN [Concomitant]
     Active Substance: METFORMIN HYDROCHLORIDE

REACTIONS (6)
  - Impaired quality of life [Unknown]
  - Alopecia [Recovering/Resolving]
  - Anxiety [Unknown]
  - Emotional distress [Unknown]
  - Pain [Unknown]
  - Psychological trauma [Unknown]

NARRATIVE: CASE EVENT DATE: 200903
